FAERS Safety Report 7482314-4 (Version None)
Quarter: 2011Q2

REPORT INFORMATION
  Report Type: 
  Country: None (occurrence: None)
  Receive Date: 20110516
  Receipt Date: 20110510
  Transmission Date: 20111010
  Serious: No
  Sender: FDA-Public Use
  Company Number: US-PFIZER INC-2011100347

PATIENT
  Age: 63 Year
  Sex: Female
  Weight: 46.259 kg

DRUGS (1)
  1. XALATAN [Suspect]
     Indication: GLAUCOMA
     Dosage: ONE DROP IN EACH EYE ONCE A DAY
     Route: 047
     Dates: start: 20070101

REACTIONS (2)
  - EYE DISORDER [None]
  - DRY EYE [None]
